FAERS Safety Report 23401622 (Version 2)
Quarter: 2024Q1

REPORT INFORMATION
  Report Type: Spontaneous
  Country: GB (occurrence: GB)
  Receive Date: 20240115
  Receipt Date: 20240122
  Transmission Date: 20240409
  Serious: Yes (Hospitalization)
  Sender: FDA-Public Use
  Company Number: None

PATIENT
  Age: 83 Year
  Weight: 105.2 kg

DRUGS (8)
  1. BISOPROLOL [Suspect]
     Active Substance: BISOPROLOL\BISOPROLOL FUMARATE
     Indication: Product used for unknown indication
     Dosage: EACH MORNING, 1 DOSAGE FORM DAILY
     Route: 065
     Dates: start: 20231212
  2. METFORMIN [Concomitant]
     Active Substance: METFORMIN HYDROCHLORIDE
     Indication: Product used for unknown indication
  3. AMOXICILLIN [Suspect]
     Active Substance: AMOXICILLIN
     Indication: Product used for unknown indication
     Dosage: TIME INTERVAL: 0.33333333 DAYS: 6 DOSAGE FORMS DAILY, DURATION: 4 DAYS
     Route: 065
     Dates: start: 20231212, end: 20231216
  4. EPLERENONE [Suspect]
     Active Substance: EPLERENONE
     Indication: Product used for unknown indication
     Dosage: 0.5 DOSAGE FORM DAILY, DURATION: 9 DAYS
     Route: 065
     Dates: start: 20231212
  5. LINAGLIPTIN [Concomitant]
     Active Substance: LINAGLIPTIN
     Indication: Product used for unknown indication
     Dosage: ONE TABLET DAILY AT THE SAME TIME EACH DAY
     Dates: start: 20231228
  6. SACUBITRIL\VALSARTAN [Suspect]
     Active Substance: SACUBITRIL\VALSARTAN
     Indication: Product used for unknown indication
     Dosage: 2 DOSAGE FORMS DAILY, DURATION: 12 DAYS
     Route: 065
     Dates: start: 20231212
  7. DAPAGLIFLOZIN [Suspect]
     Active Substance: DAPAGLIFLOZIN
     Indication: Product used for unknown indication
     Dosage: 1 DOSAGE FORM DAILY, DURATION: 9 DAYS
     Route: 065
     Dates: start: 20231212
  8. FUROSEMIDE [Suspect]
     Active Substance: FUROSEMIDE
     Indication: Product used for unknown indication
     Dosage: DURATION: 9 DAYS, 4 DOSAGE FORMS DAILY
     Route: 065
     Dates: start: 20231212

REACTIONS (3)
  - Renal tubular acidosis [Unknown]
  - Hyperkalaemia [Unknown]
  - Acute kidney injury [Unknown]

NARRATIVE: CASE EVENT DATE: 20231221
